FAERS Safety Report 18266265 (Version 2)
Quarter: 2020Q4

REPORT INFORMATION
  Report Type: Report from Study
  Country: CN (occurrence: CN)
  Receive Date: 20200915
  Receipt Date: 20201007
  Transmission Date: 20210113
  Serious: Yes (Hospitalization)
  Sender: FDA-Public Use
  Company Number: CN-BEIGENE USA INC-BGN-2020-001688

PATIENT

DRUGS (5)
  1. TENOFOVIRDISOPROXIL ARISTO [Concomitant]
     Indication: HEPATITIS B
     Dosage: 300 MILLIGRAM, QD
  2. ETIMICIN [Concomitant]
     Active Substance: ETIMICIN SULFATE
     Indication: LYMPHANGITIS
     Dosage: 200 MILLILITER, QD
     Route: 042
     Dates: start: 20200822, end: 20200824
  3. AESCUVEN FORTE [Concomitant]
     Active Substance: HERBALS
     Indication: LYMPHANGITIS
     Dosage: 0.3 GRAM, BID
     Route: 048
     Dates: start: 20200822, end: 20200824
  4. SULBENICILLIN SODIUM [Concomitant]
     Active Substance: SULBENICILLIN SODIUM
     Indication: LYMPHANGITIS
     Dosage: 4 GRAM, BID
     Route: 048
     Dates: start: 20200822, end: 20200824
  5. BGB-3111 [Suspect]
     Active Substance: ZANUBRUTINIB
     Indication: CHRONIC LYMPHOCYTIC LEUKAEMIA
     Dosage: 160 MILLIGRAM, BID
     Route: 048
     Dates: start: 20200103

REACTIONS (1)
  - Lymphangitis [Recovered/Resolved]

NARRATIVE: CASE EVENT DATE: 20200825
